FAERS Safety Report 10479765 (Version 1)
Quarter: 2014Q3

REPORT INFORMATION
  Report Type: Spontaneous
  Country: US (occurrence: None)
  Receive Date: 20140926
  Receipt Date: 20140926
  Transmission Date: 20150326
  Serious: Yes (Hospitalization)
  Sender: FDA-Public Use
  Company Number: None

PATIENT
  Age: 67 Year
  Sex: Female
  Weight: 98.1 kg

DRUGS (15)
  1. COSOPT [Concomitant]
     Active Substance: DORZOLAMIDE HYDROCHLORIDE\TIMOLOL MALEATE
  2. K-DUR20 [Concomitant]
  3. PREDNISOLONE OPHTHAMIC [Concomitant]
  4. VITD [Concomitant]
  5. COMPRO [Concomitant]
     Active Substance: PROCHLORPERAZINE
  6. AFLIBERCEPT [Suspect]
     Active Substance: AFLIBERCEPT
     Indication: COLORECTAL CANCER
     Dosage: 2MG/KG Q2WK IV
     Route: 042
     Dates: start: 20140513, end: 20140902
  7. XANAX [Concomitant]
     Active Substance: ALPRAZOLAM
  8. FOLFOX [Suspect]
     Active Substance: FLUOROURACIL\LEUCOVORIN CALCIUM\OXALIPLATIN
     Indication: COLORECTAL CANCER
     Dosage: Q2WK IV?
     Route: 042
     Dates: start: 20140513, end: 20140902
  9. BMX [Concomitant]
  10. MIRALAX [Concomitant]
     Active Substance: POLYETHYLENE GLYCOL 3350
  11. ADVIL [Concomitant]
     Active Substance: IBUPROFEN
  12. HYDROCHLOROTHORAZIDE [Concomitant]
  13. LOSARTAN [Concomitant]
     Active Substance: LOSARTAN
  14. AMLODIPINE [Concomitant]
     Active Substance: AMLODIPINE BESYLATE
  15. ASPIRIN. [Concomitant]
     Active Substance: ASPIRIN

REACTIONS (2)
  - Renal failure acute [None]
  - Neutropenia [None]

NARRATIVE: CASE EVENT DATE: 20140916
